FAERS Safety Report 14538256 (Version 1)
Quarter: 2018Q1

REPORT INFORMATION
  Report Type: Other
  Country: JP (occurrence: JP)
  Receive Date: 20180216
  Receipt Date: 20180216
  Transmission Date: 20180509
  Serious: Yes (Hospitalization)
  Sender: FDA-Public Use
  Company Number: JP-AJANTA PHARMA USA INC.-2042088

PATIENT
  Age: 69 Year
  Sex: Male

DRUGS (4)
  1. LANSOPRAZOLE (ANDA 203957) [Suspect]
     Active Substance: LANSOPRAZOLE
     Indication: GASTRIC HAEMORRHAGE
  2. CLOPIDOGREL [Concomitant]
     Active Substance: CLOPIDOGREL BISULFATE
  3. INSULIN [Concomitant]
     Active Substance: INSULIN NOS
  4. ASPIRIN. [Concomitant]
     Active Substance: ASPIRIN

REACTIONS (3)
  - Colitis microscopic [Recovering/Resolving]
  - Protein-losing gastroenteropathy [Recovering/Resolving]
  - Dehydration [Unknown]

NARRATIVE: CASE EVENT DATE: 20170515
